FAERS Safety Report 7034417-6 (Version None)
Quarter: 2010Q4

REPORT INFORMATION
  Report Type: 
  Country: None (occurrence: None)
  Receive Date: 20101008
  Receipt Date: 20100928
  Transmission Date: 20110411
  Serious: Yes (Hospitalization)
  Sender: FDA-Public Use
  Company Number: PHHY2010FR65453

PATIENT
  Sex: Male

DRUGS (7)
  1. EXELON [Suspect]
     Indication: DEMENTIA ALZHEIMER'S TYPE
     Dosage: 4.6 MG, UNK
     Route: 062
     Dates: start: 20091118, end: 20091220
  2. EXELON [Suspect]
     Dosage: 4.6 MG, UNK
     Route: 062
     Dates: start: 20100701
  3. COVERSYL /BEL/ [Concomitant]
     Dosage: 10 MG, QD
  4. TEMERIT [Concomitant]
     Dosage: 2.5 MG, QD
  5. PROCORALAN [Concomitant]
     Dosage: 5 MG, QD
  6. IPERTEN [Concomitant]
     Dosage: 10 MG, QD
  7. KARDEGIC [Concomitant]
     Dosage: 75 MG, QD

REACTIONS (4)
  - ANGINA UNSTABLE [None]
  - ARTERIAL INJURY [None]
  - CHEST PAIN [None]
  - HEART RATE DECREASED [None]
